FAERS Safety Report 25552663 (Version 2)
Quarter: 2025Q3

REPORT INFORMATION
  Report Type: Spontaneous
  Country: US (occurrence: US)
  Receive Date: 20250715
  Receipt Date: 20250716
  Transmission Date: 20251021
  Serious: No
  Sender: KARYOPHARM THERAPEUTICS
  Company Number: US-KARYOPHARM-2025KPT100486

PATIENT

DRUGS (17)
  1. SELINEXOR [Suspect]
     Active Substance: SELINEXOR
     Indication: Plasma cell myeloma
     Route: 048
     Dates: start: 20250709
  2. ACYCLOVIR [Concomitant]
     Active Substance: ACYCLOVIR
  3. CLONAZEPAM [Concomitant]
     Active Substance: CLONAZEPAM
  4. ELIQUIS [Concomitant]
     Active Substance: APIXABAN
  5. EMEND [Concomitant]
     Active Substance: APREPITANT
  6. LASIX [Concomitant]
     Active Substance: FUROSEMIDE
  7. LEVETIRACETAM [Concomitant]
     Active Substance: LEVETIRACETAM
  8. OLANZAPINE [Concomitant]
     Active Substance: OLANZAPINE
  9. ZOFRAN [Concomitant]
     Active Substance: ONDANSETRON HYDROCHLORIDE
  10. PANTOPRAZOLE [Concomitant]
     Active Substance: PANTOPRAZOLE
  11. PREGABALIN [Concomitant]
     Active Substance: PREGABALIN
  12. SERTRALINE [Concomitant]
     Active Substance: SERTRALINE HYDROCHLORIDE
  13. SIMVASTATIN [Concomitant]
     Active Substance: SIMVASTATIN
  14. XTAMPZA ER [Concomitant]
     Active Substance: OXYCODONE
  15. FUROSEMIDE [Concomitant]
     Active Substance: FUROSEMIDE
  16. LIDOCAINE [Concomitant]
     Active Substance: LIDOCAINE
  17. ONDANSETRON [Concomitant]
     Active Substance: ONDANSETRON

REACTIONS (4)
  - Myalgia [Unknown]
  - Muscular weakness [Unknown]
  - Fatigue [Unknown]
  - Asthenia [Unknown]

NARRATIVE: CASE EVENT DATE: 20250701
